FAERS Safety Report 19270659 (Version 1)
Quarter: 2021Q2

REPORT INFORMATION
  Report Type: Spontaneous
  Country: US (occurrence: US)
  Receive Date: 20210518
  Receipt Date: 20210518
  Transmission Date: 20210717
  Serious: Yes (Other)
  Sender: FDA-Public Use
  Company Number: US-PFIZER INC-2021544292

PATIENT
  Sex: Female

DRUGS (2)
  1. SOMATOLINE [ESCIN;LEVOTHYROXINE] [Suspect]
     Active Substance: ESCIN\LEVOTHYROXINE
     Dosage: UNK
  2. SOMAVERT [Suspect]
     Active Substance: PEGVISOMANT
     Dosage: UNK
     Route: 058
     Dates: start: 2006

REACTIONS (1)
  - Hypothyroidism [Unknown]
